FAERS Safety Report 7564109-6 (Version None)
Quarter: 2011Q2

REPORT INFORMATION
  Report Type: 
  Country: None (occurrence: None)
  Receive Date: 20110622
  Receipt Date: 20110617
  Transmission Date: 20111010
  Serious: Yes (Hospitalization, Disabling)
  Sender: FDA-Public Use
  Company Number: NL-PFIZER INC-2009169069

PATIENT
  Age: 81 Year
  Sex: Female
  Weight: 80 kg

DRUGS (8)
  1. EPLERENONE [Suspect]
     Dosage: 12.5 MG, UNK
     Route: 048
     Dates: start: 20070802, end: 20070827
  2. MONO-CEDOCARD [Concomitant]
     Route: 048
     Dates: start: 20060707, end: 20080518
  3. EPLERENONE [Suspect]
     Indication: CARDIAC FAILURE CHRONIC
     Dosage: 25 MG, UNK
     Route: 048
     Dates: start: 20060713, end: 20070801
  4. CAPTOPRIL [Concomitant]
     Route: 048
     Dates: start: 19990419, end: 20080518
  5. EPLERENONE [Suspect]
     Dosage: 25 MG, UNK
     Route: 048
     Dates: start: 20070828, end: 20080517
  6. METOPROLOL [Concomitant]
     Route: 048
     Dates: start: 20060407, end: 20080518
  7. FUROSEMIDE [Concomitant]
     Dosage: UNK
     Route: 048
     Dates: start: 20060102
  8. ALLOPURINOL [Concomitant]
     Route: 048
     Dates: start: 20070920, end: 20080518

REACTIONS (4)
  - CARDIAC FAILURE [None]
  - RENAL FAILURE [None]
  - URINARY TRACT INFECTION [None]
  - CONDITION AGGRAVATED [None]
